FAERS Safety Report 9837190 (Version 1)
Quarter: 2013Q4

REPORT INFORMATION
  Report Type: Spontaneous
  Country: US (occurrence: None)
  Receive Date: 20131127
  Receipt Date: 20131127
  Transmission Date: 20140711
  Serious: Yes (Other)
  Sender: FDA-Public Use
  Company Number: 2013P1017318

PATIENT
  Age: 50 Year
  Sex: Female

DRUGS (8)
  1. MYORISAN 40 MG [Suspect]
     Route: 048
     Dates: start: 20130619, end: 20130719
  2. ALDACTONE [Concomitant]
  3. LOSARTAN [Concomitant]
  4. FISH OIL [Concomitant]
  5. ASPIRIN [Concomitant]
  6. METFORMIN [Concomitant]
  7. SIMVASTATIN [Concomitant]
  8. AMARYL [Concomitant]

REACTIONS (1)
  - Hypertriglyceridaemia [None]
